FAERS Safety Report 17728784 (Version 1)
Quarter: 2020Q2

REPORT INFORMATION
  Report Type: Spontaneous
  Country: US (occurrence: US)
  Receive Date: 20200430
  Receipt Date: 20200430
  Transmission Date: 20200714
  Serious: No
  Sender: FDA-Public Use
  Company Number: US-ABBVIE-19S-163-2819226-00

PATIENT
  Sex: Male

DRUGS (4)
  1. LUMACAFTOR/IVACAFTOR [Concomitant]
     Active Substance: IVACAFTOR\LUMACAFTOR
     Indication: PRODUCT USED FOR UNKNOWN INDICATION
     Dosage: ACTIVE - TAKE WITH FAT CONTAINING FOODS. Q12
     Route: 048
     Dates: start: 20190118
  2. DOXYCYCLINE. [Concomitant]
     Active Substance: DOXYCYCLINE
     Indication: PRODUCT USED FOR UNKNOWN INDICATION
     Dosage: ACTIVE - FOR 10 DAYS
     Route: 048
     Dates: start: 20190603, end: 20190613
  3. TYLENOL [Concomitant]
     Active Substance: ACETAMINOPHEN
     Indication: PAIN
     Dosage: EVERY 6 HOURS, ACTIVE - AS NEEDED FOR PAIN
     Route: 048
  4. CREON [Suspect]
     Active Substance: PANCRELIPASE AMYLASE\PANCRELIPASE LIPASE\PANCRELIPASE PROTEASE
     Indication: CYSTIC FIBROSIS
     Dosage: TAKE 5 CAPS W/MEALS AND SNACKS
     Route: 048

REACTIONS (2)
  - Urticaria [Unknown]
  - Rash [Unknown]
